FAERS Safety Report 12157429 (Version 1)
Quarter: 2016Q1

REPORT INFORMATION
  Report Type: Spontaneous
  Country: JP (occurrence: JP)
  Receive Date: 20160308
  Receipt Date: 20160308
  Transmission Date: 20160526
  Serious: Yes (Death)
  Sender: FDA-Public Use
  Company Number: JP-009507513-1603JPN002170

PATIENT
  Age: 91 Year
  Sex: Female
  Weight: 36 kg

DRUGS (1)
  1. BELSOMRA [Suspect]
     Active Substance: SUVOREXANT
     Indication: INSOMNIA
     Dosage: 15 MG, QD
     Route: 048
     Dates: start: 20151208, end: 20160115

REACTIONS (1)
  - Death [Fatal]

NARRATIVE: CASE EVENT DATE: 20160115
